FAERS Safety Report 13902019 (Version 2)
Quarter: 2017Q3

REPORT INFORMATION
  Report Type: Spontaneous
  Country: US (occurrence: US)
  Receive Date: 20170824
  Receipt Date: 20170922
  Transmission Date: 20171127
  Serious: No
  Sender: FDA-Public Use
  Company Number: PHEH2017US026409

PATIENT
  Sex: Male
  Weight: 83.9 kg

DRUGS (2)
  1. AMOXICILLIN. [Concomitant]
     Active Substance: AMOXICILLIN
     Indication: OTITIS EXTERNA
     Dosage: 1 DF, QD
     Route: 048
     Dates: start: 20170816
  2. NEO AND POLY B SULFATES + HYDROCORTISONE [Suspect]
     Active Substance: BACITRACIN\NEOMYCIN\POLYMYXIN B
     Indication: OTITIS EXTERNA
     Dosage: 4 GTT, (3 TO 4 TIMES A DAY)
     Route: 047
     Dates: start: 20170816

REACTIONS (4)
  - Product physical consistency issue [Unknown]
  - Product use complaint [Unknown]
  - Drug ineffective [Unknown]
  - Ear pain [Not Recovered/Not Resolved]
